FAERS Safety Report 13381171 (Version 2)
Quarter: 2017Q2

REPORT INFORMATION
  Report Type: Spontaneous
  Country: US (occurrence: US)
  Receive Date: 20170329
  Receipt Date: 20170406
  Transmission Date: 20170830
  Serious: No
  Sender: FDA-Public Use
  Company Number: US-PFIZER INC-2017077431

PATIENT
  Age: 60 Year
  Sex: Male

DRUGS (4)
  1. DIMETAPP [Suspect]
     Active Substance: BROMPHENIRAMINE\PSEUDOEPHEDRINE
     Indication: VIRAL UPPER RESPIRATORY TRACT INFECTION
     Dosage: UNK
  2. SUDAFED [Suspect]
     Active Substance: PSEUDOEPHEDRINE HYDROCHLORIDE
     Indication: SINUSITIS
     Dosage: UNK
  3. DIMETAPP [Suspect]
     Active Substance: BROMPHENIRAMINE\PSEUDOEPHEDRINE
     Indication: COUGH
  4. VARENICLINE TARTRATE [Suspect]
     Active Substance: VARENICLINE TARTRATE

REACTIONS (1)
  - Drug hypersensitivity [Unknown]
